FAERS Safety Report 14656891 (Version 2)
Quarter: 2018Q2

REPORT INFORMATION
  Report Type: Spontaneous
  Country: US (occurrence: US)
  Receive Date: 20180319
  Receipt Date: 20180626
  Transmission Date: 20180711
  Serious: No
  Sender: FDA-Public Use
  Company Number: US-SA-2017SA120437

PATIENT
  Sex: Male

DRUGS (1)
  1. NASACORT ALLERGY 24HR [Suspect]
     Active Substance: TRIAMCINOLONE ACETONIDE
     Indication: MULTIPLE ALLERGIES
     Dosage: 1 DF,QD
     Route: 065
     Dates: start: 20170628

REACTIONS (2)
  - Dry eye [Not Recovered/Not Resolved]
  - Dizziness [Not Recovered/Not Resolved]
